FAERS Safety Report 10883997 (Version 3)
Quarter: 2015Q1

REPORT INFORMATION
  Report Type: Spontaneous
  Country: US (occurrence: US)
  Receive Date: 20150304
  Receipt Date: 20150310
  Transmission Date: 20150721
  Serious: Yes (Hospitalization, Other)
  Sender: FDA-Public Use
  Company Number: US-AMGEN-USASP2015019169

PATIENT
  Age: 43 Year
  Sex: Female

DRUGS (1)
  1. ENBREL [Suspect]
     Active Substance: ETANERCEPT
     Indication: RHEUMATOID ARTHRITIS
     Dosage: 50 MG, QWK
     Route: 065
     Dates: start: 19990101

REACTIONS (10)
  - Tooth impacted [Not Recovered/Not Resolved]
  - Post-traumatic stress disorder [Not Recovered/Not Resolved]
  - Activities of daily living impaired [Not Recovered/Not Resolved]
  - Joint swelling [Not Recovered/Not Resolved]
  - Gastric bypass [Recovered/Resolved]
  - Hypoaesthesia [Not Recovered/Not Resolved]
  - Clumsiness [Not Recovered/Not Resolved]
  - Bronchitis [Recovered/Resolved]
  - Tooth infection [Not Recovered/Not Resolved]
  - Synovectomy [Recovered/Resolved]

NARRATIVE: CASE EVENT DATE: 2009
